FAERS Safety Report 7877117-2 (Version None)
Quarter: 2011Q4

REPORT INFORMATION
  Report Type: 
  Country: None (occurrence: None)
  Receive Date: 20111031
  Receipt Date: 20111027
  Transmission Date: 20120403
  Serious: Yes (Death)
  Sender: FDA-Public Use
  Company Number: GB-ASTRAZENECA-2011SE64842

PATIENT
  Age: 65 Year
  Sex: Male

DRUGS (6)
  1. OMEPRAZOLE [Suspect]
     Route: 048
  2. METFORMIN HCL [Suspect]
     Route: 065
  3. GLICLAZIDE [Concomitant]
     Dosage: 80 MG TWO TIMES A DAY
  4. TEMAZEPAM [Concomitant]
     Dosage: 10 MG AS NEEDED
  5. VALPROATE SODIUM [Suspect]
     Indication: EPILEPSY
     Route: 048
  6. ATORVASTATIN CALCIUM [Concomitant]
     Dosage: 40 MG DAILY

REACTIONS (2)
  - LEG AMPUTATION [None]
  - PSYCHOTIC DISORDER [None]
